FAERS Safety Report 20779325 (Version 1)
Quarter: 2022Q2

REPORT INFORMATION
  Report Type: Spontaneous
  Country: SE (occurrence: SE)
  Receive Date: 20220503
  Receipt Date: 20220503
  Transmission Date: 20220721
  Serious: Yes (Hospitalization)
  Sender: FDA-Public Use
  Company Number: SE-NOVARTISPH-NVSC2022SE028979

PATIENT
  Sex: Male

DRUGS (1)
  1. EXJADE [Suspect]
     Active Substance: DEFERASIROX
     Indication: Myelofibrosis
     Dosage: (360 MG 3 DOSAGE FORM), QD
     Route: 065

REACTIONS (6)
  - Pyrexia [Recovering/Resolving]
  - Urticaria [Recovering/Resolving]
  - Discomfort [Recovering/Resolving]
  - Asthenia [Recovering/Resolving]
  - Reaction to colouring [Recovering/Resolving]
  - Off label use [Unknown]
